FAERS Safety Report 9346712 (Version 1)
Quarter: 2013Q2

REPORT INFORMATION
  Report Type: Spontaneous
  Country: CN (occurrence: CN)
  Receive Date: 20130613
  Receipt Date: 20130613
  Transmission Date: 20140414
  Serious: Yes (Hospitalization)
  Sender: FDA-Public Use
  Company Number: CN-JNJFOC-20130602704

PATIENT
  Age: 4 Year
  Sex: Male
  Weight: 22 kg

DRUGS (3)
  1. IBUPROFEN [Suspect]
     Indication: OROPHARYNGEAL DISCOMFORT
     Route: 048
     Dates: start: 20121111, end: 20121111
  2. IBUPROFEN [Suspect]
     Indication: RHINORRHOEA
     Route: 048
     Dates: start: 20121111, end: 20121111
  3. IBUPROFEN [Suspect]
     Indication: PYREXIA
     Route: 048
     Dates: start: 20121111, end: 20121111

REACTIONS (3)
  - Cyanosis [Not Recovered/Not Resolved]
  - Hypersensitivity [Not Recovered/Not Resolved]
  - Arthralgia [Not Recovered/Not Resolved]
